FAERS Safety Report 14612308 (Version 1)
Quarter: 2018Q1

REPORT INFORMATION
  Report Type: Spontaneous
  Country: PT (occurrence: PT)
  Receive Date: 20180308
  Receipt Date: 20180308
  Transmission Date: 20180509
  Serious: Yes (Other)
  Sender: FDA-Public Use
  Company Number: PT-WEST-WARD PHARMACEUTICALS CORP.-PT-H14001-18-01607

PATIENT
  Age: 79 Year
  Sex: Female
  Weight: 70 kg

DRUGS (2)
  1. CARBOPLATINA HIKMA [Suspect]
     Active Substance: CARBOPLATIN
     Indication: PRODUCT USED FOR UNKNOWN INDICATION
     Route: 042
     Dates: start: 20150601, end: 20180201
  2. PACLITAXEL. [Concomitant]
     Active Substance: PACLITAXEL
     Indication: PRODUCT USED FOR UNKNOWN INDICATION
     Route: 065

REACTIONS (6)
  - Hypotension [Unknown]
  - Somnolence [Unknown]
  - Abdominal pain [Recovered/Resolved]
  - Nausea [Unknown]
  - Muscular weakness [Unknown]
  - Diarrhoea [Unknown]

NARRATIVE: CASE EVENT DATE: 20180131
